FAERS Safety Report 6000306-9 (Version None)
Quarter: 2008Q4

REPORT INFORMATION
  Report Type: 
  Country: None (occurrence: None)
  Receive Date: 20081215
  Receipt Date: 20081202
  Transmission Date: 20090506
  Serious: Yes (Hospitalization)
  Sender: FDA-Public Use
  Company Number: DE-ROCHE-597615

PATIENT
  Sex: Female
  Weight: 80 kg

DRUGS (5)
  1. IBANDRONIC ACID [Suspect]
     Indication: BREAST CANCER
     Dosage: FREQUENCY: Q 28 DAY
     Route: 042
     Dates: start: 20080605, end: 20081113
  2. METFORMIN HCL [Suspect]
     Route: 048
     Dates: end: 20081118
  3. VOTUM [Suspect]
     Indication: HYPERTENSION
     Route: 048
  4. BISOBETA [Suspect]
     Indication: HYPERTENSION
     Dosage: DOSE: 10/25 UG, FREQUENCY: 1/2-0-0/ DAY
     Route: 048
  5. TAMOXIFEN [Concomitant]
     Route: 048
     Dates: start: 20080616

REACTIONS (1)
  - RENAL FAILURE ACUTE [None]
